FAERS Safety Report 9287257 (Version 2)
Quarter: 2013Q2

REPORT INFORMATION
  Report Type: Spontaneous
  Country: CA (occurrence: US)
  Receive Date: 20130513
  Receipt Date: 20130610
  Transmission Date: 20140414
  Serious: Yes (Life-Threatening, Hospitalization)
  Sender: FDA-Public Use
  Company Number: US-B.I. PHARMACEUTICALS,INC./RIDGEFIELD-2013-BI-12755BP

PATIENT
  Age: 84 Year
  Sex: Male

DRUGS (2)
  1. PRADAXA [Suspect]
     Indication: ATRIAL FIBRILLATION
     Dosage: 220 MG
     Route: 048
     Dates: start: 20120601, end: 20120629
  2. ROSUVASTATIN [Concomitant]
     Indication: BLOOD CHOLESTEROL
     Dosage: 5 MG
     Route: 048

REACTIONS (7)
  - Subdural haematoma [Recovered/Resolved]
  - Brain midline shift [Recovered/Resolved]
  - Haemorrhage intracranial [Recovered/Resolved]
  - Headache [Unknown]
  - Hemiparesis [Unknown]
  - Fall [Recovered/Resolved]
  - Head injury [Unknown]
